FAERS Safety Report 4421894-X (Version None)
Quarter: 2004Q3

REPORT INFORMATION
  Report Type: 
  Country: None (occurrence: None)
  Receive Date: 20040805
  Receipt Date: 20040723
  Transmission Date: 20050211
  Serious: Yes (Other)
  Sender: FDA-Public Use
  Company Number: 2004052132

PATIENT
  Sex: Female
  Weight: 54.4316 kg

DRUGS (8)
  1. ZOLOFT [Suspect]
     Indication: ILL-DEFINED DISORDER
  2. ALPRAZOLAM [Suspect]
     Indication: SLEEP DISORDER
     Dosage: 0.5 MG (0.5 MG, 1 IN 1 D)
  3. VALDECOXIB [Suspect]
     Indication: BACK DISORDER
     Dosage: 10 MG (10 MG, 1 IN 1 D), ORAL
     Route: 048
     Dates: start: 20040701, end: 20040701
  4. VALDECOXIB [Suspect]
     Indication: SCOLIOSIS
     Dosage: 10 MG (10 MG, 1 IN 1 D), ORAL
     Route: 048
     Dates: start: 20040701, end: 20040701
  5. ESOMEPRAZOLE (ESOMEPRAZOLE) [Concomitant]
  6. DYAZIDE [Concomitant]
  7. CENTRUM SILVER (ASCORBIC ACID, CALCIUM, MINERALS NOS, RETINOL, TOCOPHE [Concomitant]
  8. TOCOPHEROL CONCENTRATE CAP [Concomitant]

REACTIONS (12)
  - ANAL DISCOMFORT [None]
  - BACK DISORDER [None]
  - BACK INJURY [None]
  - CRUSHING INJURY OF HIP [None]
  - DRUG HYPERSENSITIVITY [None]
  - DRUG INEFFECTIVE [None]
  - FALL [None]
  - KNEE ARTHROPLASTY [None]
  - NAUSEA [None]
  - PAIN [None]
  - SCOLIOSIS [None]
  - SLEEP DISORDER [None]
